FAERS Safety Report 5612540-8 (Version None)
Quarter: 2008Q1

REPORT INFORMATION
  Report Type: 
  Country: None (occurrence: None)
  Receive Date: 20080201
  Receipt Date: 20080201
  Transmission Date: 20080703
  Serious: No
  Sender: FDA-Public Use
  Company Number: None

PATIENT
  Age: 16 Year
  Sex: Female

DRUGS (2)
  1. SINGULAIR [Suspect]
     Indication: ASTHMA
     Dosage: TAKE 1 TABLET DAILY APPROXIMATELY 10 YEARS
  2. ZYRTEC [Concomitant]

REACTIONS (4)
  - CONTUSION [None]
  - FATIGUE [None]
  - HAEMORRHAGE [None]
  - VASCULITIS [None]
